FAERS Safety Report 10227687 (Version 1)
Quarter: 2014Q2

REPORT INFORMATION
  Report Type: Report from Study
  Country: BR (occurrence: BR)
  Receive Date: 20140610
  Receipt Date: 20140610
  Transmission Date: 20141212
  Serious: Yes (Other)
  Sender: FDA-Public Use
  Company Number: PHHY2014BR070671

PATIENT
  Sex: Female

DRUGS (6)
  1. ACLASTA [Suspect]
     Indication: OSTEOPOROSIS
     Dosage: UNK UKN, YEARLY
     Route: 042
     Dates: start: 2012
  2. RIVOTRIL [Concomitant]
     Indication: ANTIDEPRESSANT THERAPY
     Dosage: 2 DF (2MG), DAILY
     Dates: start: 2002
  3. LUDIOMIL TABLET [Concomitant]
     Indication: ANTIDEPRESSANT THERAPY
     Dosage: 1 DF (25MG), AT NIGHT
     Dates: start: 2002
  4. NEOZINE [Concomitant]
     Indication: ANTIDEPRESSANT THERAPY
     Dosage: 5 DF, DAILY
     Dates: start: 2002
  5. CO-RENITEC [Concomitant]
     Indication: HYPERTENSION
     Dosage: 1 DF, QD
     Dates: start: 2002
  6. SIFROL [Concomitant]
     Indication: CARDIOVASCULAR DISORDER
     Dosage: 1 DF, QD
     Dates: start: 2013

REACTIONS (4)
  - Spinal deformity [Recovering/Resolving]
  - Osteoporosis [Recovering/Resolving]
  - Disease progression [Recovering/Resolving]
  - Bone pain [Recovering/Resolving]
